FAERS Safety Report 21532128 (Version 1)
Quarter: 2022Q4

REPORT INFORMATION
  Report Type: Report from Study
  Country: US (occurrence: US)
  Receive Date: 20221101
  Receipt Date: 20221101
  Transmission Date: 20230113
  Serious: No
  Sender: FDA-Public Use
  Company Number: US-ACADIA PHARMACEUTICALS INC.-ACA-2022-PIM-003449

PATIENT
  Sex: Male

DRUGS (12)
  1. NUPLAZID [Suspect]
     Active Substance: PIMAVANSERIN TARTRATE
     Indication: Parkinson^s disease psychosis
     Dosage: 34 MILLIGRAM, QD
     Route: 048
  2. NUPLAZID [Suspect]
     Active Substance: PIMAVANSERIN TARTRATE
     Indication: Hallucination
  3. NUPLAZID [Suspect]
     Active Substance: PIMAVANSERIN TARTRATE
     Indication: Delusion
  4. SINEMET [Concomitant]
     Active Substance: CARBIDOPA\LEVODOPA
     Dosage: 25-100 MG, TAKE 1 TABLET TWICE A DAY WHEN YOU WAKEUP AND MIDDLE AFTERNOON
     Route: 048
  5. CARBIDOPA [Concomitant]
     Active Substance: CARBIDOPA
  6. Little blood pressure pill [Concomitant]
  7. NARATRIPTAN [Concomitant]
     Active Substance: NARATRIPTAN HYDROCHLORIDE
     Indication: Migraine
     Dosage: 2.5 MG, TAKE 1 TABLET AT MIGRAINE ONSET AND AGAIN IN 4 HOURS IF NEEDED, MAX 2/24 HOURS
     Route: 048
  8. CHLORTHALIDONE [Concomitant]
     Active Substance: CHLORTHALIDONE
     Dosage: 25 MILLIGRAM, ONCE A DAY
     Route: 048
  9. CARVEDILOL [Concomitant]
     Active Substance: CARVEDILOL
     Dosage: 6.25 MG, 1 TABLET TWICE A DAY
     Route: 048
  10. IMITREX [Concomitant]
     Active Substance: SUMATRIPTAN SUCCINATE
  11. MAXALT [Concomitant]
     Active Substance: RIZATRIPTAN BENZOATE
  12. ZONEGRAN [Concomitant]
     Active Substance: ZONISAMIDE

REACTIONS (4)
  - Heart rate decreased [Recovered/Resolved]
  - Gait inability [Recovered/Resolved]
  - Oxygen saturation decreased [Recovered/Resolved]
  - Hallucination [Recovered/Resolved]
